FAERS Safety Report 6074162-7 (Version None)
Quarter: 2009Q1

REPORT INFORMATION
  Report Type: 
  Country: None (occurrence: None)
  Receive Date: 20090211
  Receipt Date: 20080924
  Transmission Date: 20090719
  Serious: Yes (Death)
  Sender: FDA-Public Use
  Company Number: GB-ROCHE-612761

PATIENT
  Age: 76 Year

DRUGS (1)
  1. XELODA [Suspect]
     Indication: RECTAL CANCER
     Dosage: INDICATION REPORTED AS RECTAL PRIMARY T3 NO
     Route: 065

REACTIONS (1)
  - DEATH [None]
